FAERS Safety Report 10962615 (Version 1)
Quarter: 2015Q1

REPORT INFORMATION
  Report Type: Spontaneous
  Country: US (occurrence: US)
  Receive Date: 20150327
  Receipt Date: 20150327
  Transmission Date: 20150721
  Serious: Yes (Other)
  Sender: FDA-Public Use
  Company Number: US-TEVA-549858USA

PATIENT
  Sex: Female

DRUGS (2)
  1. COPAXONE [Suspect]
     Active Substance: GLATIRAMER ACETATE
     Indication: MULTIPLE SCLEROSIS
  2. ACTHAR [Suspect]
     Active Substance: CORTICOTROPIN
     Indication: MULTIPLE SCLEROSIS
     Route: 065

REACTIONS (6)
  - Hypothyroidism [Unknown]
  - Visual acuity reduced [Unknown]
  - Diabetes mellitus [Not Recovered/Not Resolved]
  - Seizure [Unknown]
  - Weight increased [Unknown]
  - Claustrophobia [Unknown]
